FAERS Safety Report 17432985 (Version 1)
Quarter: 2020Q1

REPORT INFORMATION
  Report Type: Report from Study
  Country: None (occurrence: AT)
  Receive Date: 20200219
  Receipt Date: 20200219
  Transmission Date: 20200409
  Serious: Yes (Hospitalization)
  Sender: FDA-Public Use
  Company Number: AT-ABBVIE-20K-009-3279698-00

PATIENT
  Sex: Male

DRUGS (1)
  1. DUODOPA [Suspect]
     Active Substance: CARBIDOPA\LEVODOPA
     Indication: PARKINSON^S DISEASE
     Dosage: 16H??MD: 9ML, CR DAYTIME: 4ML/H, ED: 2.6ML
     Route: 050
     Dates: start: 20151118

REACTIONS (2)
  - Influenza [Recovering/Resolving]
  - Colitis [Recovering/Resolving]
